FAERS Safety Report 4881672-4 (Version None)
Quarter: 2006Q1

REPORT INFORMATION
  Report Type: 
  Country: None (occurrence: None)
  Receive Date: 20060112
  Receipt Date: 20060112
  Transmission Date: 20060701
  Serious: Yes (Other)
  Sender: FDA-Public Use
  Company Number: None

PATIENT
  Age: 36 Year
  Sex: Female
  Weight: 72.5755 kg

DRUGS (1)
  1. AMBIEN CR [Suspect]
     Indication: INSOMNIA
     Dosage: 12.5 MG   ONCE AT NIGHT  PO
     Route: 048
     Dates: start: 20051115, end: 20060110

REACTIONS (2)
  - DIPLOPIA [None]
  - IMPAIRED DRIVING ABILITY [None]
